FAERS Safety Report 6804458-X (Version None)
Quarter: 2010Q2

REPORT INFORMATION
  Report Type: 
  Country: None (occurrence: None)
  Receive Date: 20100628
  Receipt Date: 20070521
  Transmission Date: 20101027
  Serious: No
  Sender: FDA-Public Use
  Company Number: US-PFIZER INC-2007024978

PATIENT
  Sex: Female
  Weight: 72.57 kg

DRUGS (2)
  1. XALATAN [Suspect]
     Indication: INTRAOCULAR PRESSURE TEST ABNORMAL
     Dosage: 1 DROP IN EACH EYE
     Dates: start: 20020101
  2. VALSARTAN [Concomitant]

REACTIONS (1)
  - EYELIDS PRURITUS [None]
